FAERS Safety Report 25225655 (Version 3)
Quarter: 2025Q2

REPORT INFORMATION
  Report Type: Spontaneous
  Country: BR (occurrence: BR)
  Receive Date: 20250422
  Receipt Date: 20250512
  Transmission Date: 20250717
  Serious: Yes (Other)
  Sender: CHEPLAPHARM
  Company Number: BR-CHEPLA-2025005039

PATIENT
  Age: 58 Year
  Sex: Female
  Weight: 89 kg

DRUGS (4)
  1. CLONAZEPAM [Suspect]
     Active Substance: CLONAZEPAM
     Indication: Anxiety
     Route: 048
  2. CLONAZEPAM [Suspect]
     Active Substance: CLONAZEPAM
     Indication: Nervousness
     Route: 048
  3. CLONAZEPAM [Suspect]
     Active Substance: CLONAZEPAM
     Indication: Anxiety
     Route: 048
  4. CLONAZEPAM [Suspect]
     Active Substance: CLONAZEPAM
     Indication: Nervousness
     Route: 048

REACTIONS (15)
  - Pneumonia [Recovered/Resolved]
  - Diabetes mellitus [Recovering/Resolving]
  - Oral discomfort [Unknown]
  - Pain [Recovering/Resolving]
  - Anxiety [Recovering/Resolving]
  - Poor quality sleep [Recovering/Resolving]
  - Labyrinthitis [Recovering/Resolving]
  - Hypertension [Recovering/Resolving]
  - Epistaxis [Recovered/Resolved]
  - Wrong technique in product usage process [Unknown]
  - Intentional product use issue [Unknown]
  - Product use in unapproved indication [Not Recovered/Not Resolved]
  - Product prescribing error [Unknown]
  - Hypercholesterolaemia [Recovering/Resolving]
  - Influenza [Not Recovered/Not Resolved]

NARRATIVE: CASE EVENT DATE: 19960415
